FAERS Safety Report 25459602 (Version 1)
Quarter: 2025Q2

REPORT INFORMATION
  Report Type: Spontaneous
  Country: PL (occurrence: PL)
  Receive Date: 20250620
  Receipt Date: 20250620
  Transmission Date: 20250717
  Serious: Yes (Other)
  Sender: AUROBINDO
  Company Number: PL-ADIENNEP-2025AD000360

PATIENT
  Sex: Female

DRUGS (3)
  1. MELPHALAN [Suspect]
     Active Substance: MELPHALAN
     Indication: Autologous haematopoietic stem cell transplant
     Route: 065
  2. BUSULFAN [Suspect]
     Active Substance: BUSULFAN
     Indication: Autologous haematopoietic stem cell transplant
     Route: 065
  3. DEFIBROTIDE [Concomitant]
     Active Substance: DEFIBROTIDE (BOVINE)
     Indication: Autologous haematopoietic stem cell transplant
     Route: 065

REACTIONS (4)
  - Venoocclusive liver disease [Unknown]
  - Gait disturbance [Unknown]
  - Hemiparesis [Unknown]
  - Intracranial tumour haemorrhage [Unknown]
